FAERS Safety Report 10018026 (Version 1)
Quarter: 2014Q1

REPORT INFORMATION
  Report Type: Spontaneous
  Country: FR (occurrence: FR)
  Receive Date: 20140318
  Receipt Date: 20140318
  Transmission Date: 20141002
  Serious: Yes (Death, Hospitalization)
  Sender: FDA-Public Use
  Company Number: FR-TEVA-467548ISR

PATIENT
  Age: 42 Year
  Sex: Female

DRUGS (8)
  1. DOXORUBICINE TEVA [Suspect]
     Indication: DIFFUSE LARGE B-CELL LYMPHOMA STAGE IV
     Dosage: SEVEN COURSES OF CHEMOTHERAPY WITH R-CHOP PROTOCOL
     Route: 042
     Dates: start: 20101223, end: 20110411
  2. ENDOXAN [Suspect]
     Indication: DIFFUSE LARGE B-CELL LYMPHOMA STAGE IV
     Dosage: 1080 MILLIGRAM DAILY; SEVEN COURSES OF CHEMOTHERAPY WITH R-CHOP PROTOCOL
     Route: 042
     Dates: start: 20101223, end: 20110411
  3. RITUXIMAB [Concomitant]
     Indication: DIFFUSE LARGE B-CELL LYMPHOMA STAGE IV
     Dosage: 540 MILLIGRAM DAILY; SEVEN COURSES OF CHEMOTHERAPY WITH R-CHOP PROTOCOL
     Dates: start: 20101223, end: 20110411
  4. VINCRISTINE [Concomitant]
     Indication: DIFFUSE LARGE B-CELL LYMPHOMA STAGE IV
     Dosage: 2 MILLIGRAM DAILY; SEVEN COURSES OF CHEMOTHERAPY WITH R-CHOP PROTOCOL
     Dates: start: 20101223, end: 20110411
  5. PREDNISONE [Concomitant]
     Indication: DIFFUSE LARGE B-CELL LYMPHOMA STAGE IV
     Dosage: 60 MILLIGRAM DAILY; FROM DAY 1 TO DAY 5, SEVEN COURSES OF CHEMOTHERAPY WITH R-CHOP PROTOCOL
     Dates: start: 20101223, end: 20110411
  6. METHOTREXATE [Concomitant]
     Indication: DIFFUSE LARGE B-CELL LYMPHOMA STAGE IV
     Dosage: 15 MILLIGRAM DAILY; DURING THE THIRD COURSE OF CHEMOTHERAPY WITH R-CHOP PROTOCOL
     Dates: start: 20110113, end: 20110113
  7. METHOTREXATE [Concomitant]
     Dosage: 15 MICROGRAM DAILY; DURING THE FOURTH COURSE OF CHEMOTHERAPY WITH R-CHOP PROTOCOL
     Route: 042
     Dates: start: 20110127, end: 20110127
  8. METHOTREXATE [Concomitant]
     Dosage: 15 MILLIGRAM DAILY; DURING THE FIFTH COURSE OF CHEMOTHERAPY WITH R-CHOP PROTOCOL
     Route: 042
     Dates: start: 20110214, end: 20110214

REACTIONS (6)
  - Myocarditis [Fatal]
  - Cardiac failure [Unknown]
  - Pulmonary oedema [Unknown]
  - Pericardial effusion [Unknown]
  - Convulsion [Unknown]
  - Cerebrovascular accident [Unknown]
